FAERS Safety Report 4965378-9 (Version None)
Quarter: 2006Q2

REPORT INFORMATION
  Report Type: 
  Country: None (occurrence: None)
  Receive Date: 20060406
  Receipt Date: 20011217
  Transmission Date: 20061013
  Serious: Yes (Life-Threatening, Hospitalization)
  Sender: FDA-Public Use
  Company Number: US-MERCK-0112USA01793

PATIENT
  Age: 51 Year
  Sex: Female
  Weight: 58 kg

DRUGS (7)
  1. VIOXX [Suspect]
     Indication: MONARTHRITIS
     Route: 048
     Dates: start: 20040501, end: 20040601
  2. VIOXX [Suspect]
     Route: 048
     Dates: start: 20010626, end: 20010705
  3. VIOXX [Suspect]
     Indication: PAIN
     Route: 048
     Dates: start: 20040501, end: 20040601
  4. VIOXX [Suspect]
     Route: 048
     Dates: start: 20010626, end: 20010705
  5. VITAMINS (UNSPECIFIED) [Concomitant]
     Route: 065
  6. ESTROGENS (UNSPECIFIED) [Concomitant]
     Route: 065
  7. GUAIFENESIN [Concomitant]
     Route: 065

REACTIONS (1)
  - MYOCARDIAL INFARCTION [None]
